FAERS Safety Report 5469462-5 (Version None)
Quarter: 2007Q3

REPORT INFORMATION
  Report Type: 
  Country: None (occurrence: None)
  Receive Date: 20070925
  Receipt Date: 20070925
  Transmission Date: 20080115
  Serious: Yes (Hospitalization)
  Sender: FDA-Public Use
  Company Number: None

PATIENT
  Sex: Male
  Weight: 89.4 kg

DRUGS (8)
  1. HYDROXYCHLOROQUINE SULFATE [Suspect]
     Indication: NON-SMALL CELL LUNG CANCER
     Dosage: 400MG QD PO
     Route: 048
     Dates: start: 20070817, end: 20070923
  2. ERLOTINIB [Suspect]
     Indication: NON-SMALL CELL LUNG CANCER
     Dosage: 150MG QD PO
     Route: 048
     Dates: start: 20070817, end: 20070923
  3. CLINDAMYCIN HCL [Concomitant]
  4. LOVENOX [Concomitant]
  5. OXYCODONE HCL [Concomitant]
  6. OXYCONTIN [Concomitant]
  7. TESSALON [Concomitant]
  8. TUSSIONEX [Concomitant]

REACTIONS (1)
  - PNEUMONITIS [None]
